FAERS Safety Report 12669655 (Version 2)
Quarter: 2016Q3

REPORT INFORMATION
  Report Type: Report from Study
  Country: US (occurrence: US)
  Receive Date: 20160819
  Receipt Date: 20160825
  Transmission Date: 20161109
  Serious: No
  Sender: FDA-Public Use
  Company Number: US-AMGEN-USASL2016106153

PATIENT
  Age: 55 Year
  Sex: Female

DRUGS (1)
  1. ENBREL [Suspect]
     Active Substance: ETANERCEPT
     Indication: PSORIATIC ARTHROPATHY
     Dosage: 50 MG, QWK
     Route: 065
     Dates: start: 20160727

REACTIONS (9)
  - Malaise [Unknown]
  - Exposure to communicable disease [Unknown]
  - Fatigue [Unknown]
  - Injection site erythema [Not Recovered/Not Resolved]
  - Injection site swelling [Not Recovered/Not Resolved]
  - Abdominal discomfort [Unknown]
  - Pain [Unknown]
  - Injection site pruritus [Not Recovered/Not Resolved]
  - Injection site warmth [Not Recovered/Not Resolved]

NARRATIVE: CASE EVENT DATE: 2016
